FAERS Safety Report 6306143-X (Version None)
Quarter: 2009Q3

REPORT INFORMATION
  Report Type: 
  Country: None (occurrence: None)
  Receive Date: 20090812
  Receipt Date: 20090804
  Transmission Date: 20100115
  Serious: Yes (Other)
  Sender: FDA-Public Use
  Company Number: US-BAYER-200912679BCC

PATIENT
  Age: 45 Year
  Sex: Female
  Weight: 57 kg

DRUGS (2)
  1. MIDOL PM CAPLETS [Suspect]
     Indication: DYSMENORRHOEA
     Route: 048
     Dates: start: 20090729, end: 20090729
  2. TRADER JOE`S MULTI-VITAMIN [Concomitant]
     Route: 065

REACTIONS (1)
  - SOMNOLENCE [None]
